FAERS Safety Report 24186229 (Version 1)
Quarter: 2024Q3

REPORT INFORMATION
  Report Type: Spontaneous
  Country: AU (occurrence: AU)
  Receive Date: 20240808
  Receipt Date: 20240808
  Transmission Date: 20241017
  Serious: Yes (Other)
  Sender: AMGEN
  Company Number: AU-AMGEN-AUSSP2024152988

PATIENT
  Age: 55 Year
  Sex: Female

DRUGS (2)
  1. BLINATUMOMAB [Suspect]
     Active Substance: BLINATUMOMAB
     Indication: Minimal residual disease
     Dosage: UNK
     Route: 065
  2. DASATINIB [Concomitant]
     Active Substance: DASATINIB
     Indication: Minimal residual disease

REACTIONS (2)
  - Acute lymphocytic leukaemia [Unknown]
  - Pancytopenia [Unknown]
